FAERS Safety Report 9361170 (Version 1)
Quarter: 2013Q2

REPORT INFORMATION
  Report Type: Spontaneous
  Country: US (occurrence: None)
  Receive Date: 20130618
  Receipt Date: 20130618
  Transmission Date: 20140414
  Serious: Yes (Other)
  Sender: FDA-Public Use
  Company Number: 2013P1006997

PATIENT
  Age: 18 Year
  Sex: Female

DRUGS (2)
  1. MYORISAN [Suspect]
     Indication: ACNE
     Route: 048
     Dates: start: 20130506, end: 201306
  2. MYORISAN 40 MG [Suspect]
     Indication: ACNE
     Route: 048
     Dates: start: 20130402, end: 201306

REACTIONS (2)
  - Anxiety [None]
  - Depression [None]
